FAERS Safety Report 14978130 (Version 1)
Quarter: 2018Q2

REPORT INFORMATION
  Report Type: Spontaneous
  Country: SE (occurrence: SE)
  Receive Date: 20180606
  Receipt Date: 20180606
  Transmission Date: 20180711
  Serious: Yes (Other)
  Sender: FDA-Public Use
  Company Number: SE-TEVA-2018-SE-901205

PATIENT
  Sex: Male

DRUGS (1)
  1. PREDNISOLON ACTAVIS [Suspect]
     Active Substance: PREDNISOLONE
     Indication: RHEUMATIC DISORDER
     Route: 065

REACTIONS (1)
  - Type 2 diabetes mellitus [Unknown]
